FAERS Safety Report 8045839-9 (Version None)
Quarter: 2012Q1

REPORT INFORMATION
  Report Type: 
  Country: None (occurrence: None)
  Receive Date: 20120113
  Receipt Date: 20120112
  Transmission Date: 20120608
  Serious: Yes (Other)
  Sender: FDA-Public Use
  Company Number: PR-BAYER-2012-003780

PATIENT
  Age: 29 Year
  Sex: Female

DRUGS (1)
  1. INTERFERON BETA-1B [Suspect]
     Indication: MULTIPLE SCLEROSIS
     Dosage: 8 MIU, QOD
     Route: 058
     Dates: start: 20110407

REACTIONS (3)
  - INJECTION SITE ERYTHEMA [None]
  - GASTROOESOPHAGEAL REFLUX DISEASE [None]
  - HEPATOMEGALY [None]
